FAERS Safety Report 13560599 (Version 1)
Quarter: 2017Q2

REPORT INFORMATION
  Report Type: Spontaneous
  Country: US (occurrence: US)
  Receive Date: 20170518
  Receipt Date: 20170518
  Transmission Date: 20170830
  Serious: Yes (Other)
  Sender: FDA-Public Use
  Company Number: US-FRESENIUS KABI-FK201704161

PATIENT
  Age: 53 Year
  Sex: Male

DRUGS (5)
  1. EMTRICITABINE [Suspect]
     Active Substance: EMTRICITABINE
     Indication: ANTIRETROVIRAL THERAPY
  2. METHOTREXATE (MANUFACTURER UNKNOWN) [Suspect]
     Active Substance: METHOTREXATE
     Indication: CENTRAL NERVOUS SYSTEM LYMPHOMA
     Route: 065
  3. EFAVIRENZ [Suspect]
     Active Substance: EFAVIRENZ
     Indication: ANTIRETROVIRAL THERAPY
  4. CYTARABINE (MANUFACTURER UNKNOWN) [Suspect]
     Active Substance: CYTARABINE
     Indication: CENTRAL NERVOUS SYSTEM LYMPHOMA
     Route: 065
  5. TENOFOVIR DISOPROXIL FUMARATE. [Suspect]
     Active Substance: TENOFOVIR DISOPROXIL FUMARATE
     Indication: ANTIRETROVIRAL THERAPY

REACTIONS (2)
  - Off label use [Unknown]
  - Alanine aminotransferase increased [Unknown]
